FAERS Safety Report 26003947 (Version 1)
Quarter: 2025Q4

REPORT INFORMATION
  Report Type: Spontaneous
  Country: GB (occurrence: GB)
  Receive Date: 20251106
  Receipt Date: 20251106
  Transmission Date: 20260117
  Serious: Yes (Other)
  Sender: TEVA
  Company Number: None

PATIENT
  Age: 73 Year
  Sex: Female
  Weight: 110 kg

DRUGS (16)
  1. CARVEDILOL [Suspect]
     Active Substance: CARVEDILOL
     Indication: Product used for unknown indication
     Route: 048
     Dates: start: 20250918, end: 20251016
  2. BISOPROLOL [Concomitant]
     Active Substance: BISOPROLOL
     Indication: Ill-defined disorder
     Dosage: AT NIGHT
     Dates: start: 20251028
  3. NEBIVOLOL [Concomitant]
     Active Substance: NEBIVOLOL
     Indication: Ill-defined disorder
     Dates: start: 20250901, end: 20250929
  4. DERMOL [Concomitant]
     Active Substance: BENZALKONIUM CHLORIDE\CHLORHEXIDINE HYDROCHLORIDE\ISOPROPYL MYRISTATE\PARAFFIN
     Indication: Ill-defined disorder
     Dosage: USE REGULARLY ON LEGS AT LEAST
     Dates: start: 20250918, end: 20251018
  5. HYDROCORTISONE [Concomitant]
     Active Substance: HYDROCORTISONE
     Indication: Ill-defined disorder
     Dosage: APPLY THINLY ONCE OR TWICE DAILY
     Dates: start: 20251016, end: 20251023
  6. ALBUTEROL [Concomitant]
     Active Substance: ALBUTEROL
     Indication: Ill-defined disorder
     Dosage: ONE OR TWO PUFFS TO BE INHALED UP TO FOUR TIMES...
     Dates: start: 20250506
  7. SPIRONOLACTONE [Concomitant]
     Active Substance: SPIRONOLACTONE
     Indication: Ill-defined disorder
     Dates: start: 20250704, end: 20250731
  8. RAMIPRIL [Concomitant]
     Active Substance: RAMIPRIL
     Indication: Ill-defined disorder
     Dates: start: 20250506
  9. FEXOFENADINE [Concomitant]
     Active Substance: FEXOFENADINE HYDROCHLORIDE
     Indication: Ill-defined disorder
     Dosage: TO SUPPRESS ALLERGIC SYMPTOMS
     Dates: start: 20250922, end: 20251022
  10. SILICON [Concomitant]
     Active Substance: SILICON
     Indication: Ill-defined disorder
     Dosage: USE AS DIRECTED
     Dates: start: 20251013
  11. PREDNISOLONE [Concomitant]
     Active Substance: PREDNISOLONE
     Indication: Ill-defined disorder
     Dosage: SIX TO BE TAKEN ALL TOGETHER AS ONE DOSE (30MG)...
     Dates: start: 20250506
  12. VISCOPASTE PB7 [Concomitant]
     Indication: Ill-defined disorder
     Dosage: USE AS DIRECTED
     Dates: start: 20251003, end: 20251004
  13. CETRABEN [Concomitant]
     Indication: Ill-defined disorder
     Dosage: TO DRY SKIN
     Dates: start: 20250612
  14. DOXYCYCLINE [Concomitant]
     Active Substance: DOXYCYCLINE
     Indication: Ill-defined disorder
     Dosage: TAKE TWO NOW, THEN ONE DAILY FOR 6 DAYS TO TREA
     Dates: start: 20250506
  15. BECLOMETHASONE DIPROPIONATE\FORMOTEROL FUMARATE\GLYCOPYRROLATE [Concomitant]
     Active Substance: BECLOMETHASONE DIPROPIONATE\FORMOTEROL FUMARATE\GLYCOPYRROLATE
     Indication: Ill-defined disorder
     Dates: start: 20250506
  16. AMITRIPTYLINE HYDROCHLORIDE [Concomitant]
     Active Substance: AMITRIPTYLINE HYDROCHLORIDE
     Indication: Ill-defined disorder
     Dosage: ONE EACH NIGHT
     Dates: start: 20250731

REACTIONS (1)
  - Eczema [Recovered/Resolved]
